FAERS Safety Report 16838610 (Version 1)
Quarter: 2019Q3

REPORT INFORMATION
  Report Type: Spontaneous
  Country: US (occurrence: US)
  Receive Date: 20190731
  Receipt Date: 20190731
  Transmission Date: 20191005
  Serious: Yes (Other)
  Sender: FDA-Public Use
  Company Number: None

PATIENT
  Age: 74 Year
  Sex: Female
  Weight: 81.74 kg

DRUGS (1)
  1. IMATINIB 100MG 3 DAILY [Suspect]
     Active Substance: IMATINIB
     Route: 048

REACTIONS (3)
  - Diarrhoea [None]
  - Skin lesion [None]
  - Stomatitis [None]

NARRATIVE: CASE EVENT DATE: 20190731
